FAERS Safety Report 11819383 (Version 2)
Quarter: 2016Q4

REPORT INFORMATION
  Report Type: Spontaneous
  Country: US (occurrence: US)
  Receive Date: 20151210
  Receipt Date: 20161005
  Transmission Date: 20170206
  Serious: Yes (Other)
  Sender: FDA-Public Use
  Company Number: US-JNJFOC-20151109368

PATIENT
  Age: 14 Year
  Sex: Male

DRUGS (1)
  1. RISPERDAL [Suspect]
     Active Substance: RISPERIDONE
     Indication: AUTISM
     Dosage: 0.5MG, 1.0MG
     Route: 048
     Dates: start: 2001, end: 2007

REACTIONS (2)
  - Gynaecomastia [Unknown]
  - Obesity [Recovering/Resolving]

NARRATIVE: CASE EVENT DATE: 20070619
